FAERS Safety Report 15558326 (Version 1)
Quarter: 2018Q4

REPORT INFORMATION
  Report Type: Spontaneous
  Country: US (occurrence: US)
  Receive Date: 20181028
  Receipt Date: 20181028
  Transmission Date: 20190205
  Serious: No
  Sender: FDA-Public Use
  Company Number: US-TEVA-2018-US-968859

PATIENT
  Sex: Female

DRUGS (1)
  1. PORTIA [Suspect]
     Active Substance: ETHINYL ESTRADIOL\LEVONORGESTREL
     Dosage: ETHINYLESTRADIOL 0.15 MG/ LEVONORGESTREL 0.03 MG
     Route: 065
     Dates: start: 20180925

REACTIONS (5)
  - Mood altered [Unknown]
  - Apathy [Unknown]
  - Product substitution issue [Unknown]
  - Depressed mood [Unknown]
  - Emotional disorder [Unknown]

NARRATIVE: CASE EVENT DATE: 20181009
